FAERS Safety Report 22069770 (Version 1)
Quarter: 2023Q1

REPORT INFORMATION
  Report Type: Spontaneous
  Country: CN (occurrence: CN)
  Receive Date: 20230307
  Receipt Date: 20230307
  Transmission Date: 20230418
  Serious: Yes (Other)
  Sender: FDA-Public Use
  Company Number: CN-PFIZER INC-PV202300042423

PATIENT
  Age: 35 Year
  Sex: Female
  Weight: 75 kg

DRUGS (1)
  1. HEMABATE [Suspect]
     Active Substance: CARBOPROST TROMETHAMINE
     Indication: Uterine hypotonus
     Dosage: 250 UG, 1X/DAY
     Route: 030
     Dates: start: 20230224, end: 20230224

REACTIONS (4)
  - Palpitations [Recovered/Resolved]
  - Chest discomfort [Recovered/Resolved]
  - Hyperhidrosis [Recovered/Resolved]
  - Discomfort [Recovered/Resolved]

NARRATIVE: CASE EVENT DATE: 20230224
